FAERS Safety Report 10534321 (Version 1)
Quarter: 2014Q4

REPORT INFORMATION
  Report Type: Spontaneous
  Country: US (occurrence: US)
  Receive Date: 20141022
  Receipt Date: 20141022
  Transmission Date: 20150529
  Serious: Yes (Hospitalization, Other)
  Sender: FDA-Public Use
  Company Number: US-ACTAVIS-2014-22293

PATIENT
  Age: 62 Year
  Sex: Female

DRUGS (3)
  1. TRIAMCINOLONE ACETONIDE (AMALLC) [Suspect]
     Active Substance: TRIAMCINOLONE ACETONIDE
     Indication: BACK PAIN
     Dosage: 80 MG, CYCLICAL, 51DAYS, 17 DAYS, 9 DAYS BEFORE ADMISSION
     Route: 008
  2. ALENDRONATE [Concomitant]
     Active Substance: ALENDRONATE SODIUM
     Indication: OSTEOPOROSIS
     Dosage: UNK
     Route: 065
  3. MEDROL [Suspect]
     Active Substance: METHYLPREDNISOLONE
     Indication: BACK PAIN
     Dosage: 84 MG, TOTAL, TAPERED OVER 5 DAYS
     Route: 048

REACTIONS (1)
  - Herpes oesophagitis [Recovering/Resolving]
